FAERS Safety Report 4322590-X (Version None)
Quarter: 2004Q1

REPORT INFORMATION
  Report Type: 
  Country: None (occurrence: None)
  Receive Date: 20040319
  Receipt Date: 20040312
  Transmission Date: 20041129
  Serious: Yes (Hospitalization)
  Sender: FDA-Public Use
  Company Number: 2004-DE-01076GD (0)

PATIENT
  Age: 37 Year
  Sex: Male

DRUGS (4)
  1. CYCLOPHOSPHAMIDE [Suspect]
     Indication: RENAL TRANSPLANT
     Dosage: PO
     Route: 048
  2. PREDNISOLONE [Suspect]
     Indication: RENAL TRANSPLANT
  3. CYCLOSPORINE [Suspect]
     Indication: RENAL TRANSPLANT
  4. CAMPATH [Suspect]
     Indication: RENAL TRANSPLANT

REACTIONS (3)
  - GRAFT LOSS [None]
  - LYMPHOCYTE COUNT DECREASED [None]
  - PNEUMOCYSTIS CARINII PNEUMONIA [None]
